FAERS Safety Report 4832085-2 (Version None)
Quarter: 2005Q4

REPORT INFORMATION
  Report Type: 
  Country: None (occurrence: None)
  Receive Date: 20051116
  Receipt Date: 20051102
  Transmission Date: 20060501
  Serious: Yes (Hospitalization, Other)
  Sender: FDA-Public Use
  Company Number: US067576

PATIENT
  Age: 79 Year
  Sex: Male
  Weight: 100 kg

DRUGS (14)
  1. ARANESP [Suspect]
     Indication: RENAL FAILURE CHRONIC
     Dosage: 100 MCG, 1 IN 2 WEEKS, SC
     Route: 058
     Dates: start: 20031003
  2. PROCRIT [Suspect]
     Indication: RENAL FAILURE CHRONIC
     Dosage: 10000 U
     Dates: start: 20030815, end: 20031003
  3. CYCLOSPORINE [Concomitant]
  4. PREDNISONE [Concomitant]
  5. WARFARIN SODIUM [Concomitant]
  6. CLOPIDOGREL BISULFATE [Concomitant]
  7. PANTOPRAZOLE SODIUM [Concomitant]
  8. METOPROLOL SUCCINATE [Concomitant]
  9. AMLODIPINE BESYLATE [Concomitant]
  10. ATORVASTATIN CALCIUM [Concomitant]
  11. ISOSORBIDE MONONITRATE [Concomitant]
  12. ROSIGLITAZONE [Concomitant]
  13. NOVOLIN 70/30 [Concomitant]
  14. MYCOPHENOLATE MOFETIL [Suspect]
     Dosage: 1 G, 2 IN 1 DAYS
     Dates: start: 19950101

REACTIONS (6)
  - BLOOD IMMUNOGLOBULIN M INCREASED [None]
  - BONE MARROW FAILURE [None]
  - CHEST PAIN [None]
  - PARVOVIRUS B19 SEROLOGY POSITIVE [None]
  - RED BLOOD CELL SEDIMENTATION RATE INCREASED [None]
  - THERAPEUTIC RESPONSE DECREASED [None]
